FAERS Safety Report 8976212 (Version 1)
Quarter: 2012Q4

REPORT INFORMATION
  Report Type: 
  Country: CH (occurrence: CH)
  Receive Date: 20121220
  Receipt Date: 20121220
  Transmission Date: 20130627
  Serious: Yes (Hospitalization)
  Sender: FDA-Public Use
  Company Number: CH-TEVA-376916USA

PATIENT
  Age: 74 Year
  Sex: Female

DRUGS (13)
  1. TREANDA [Suspect]
     Indication: NON-HODGKIN^S LYMPHOMA
     Dosage: Cyclic
     Route: 042
     Dates: start: 20121003
  2. MABTHERA [Suspect]
     Indication: NON-HODGKIN^S LYMPHOMA
     Dosage: cyclic
     Route: 042
     Dates: start: 20121003
  3. ZYLORIC [Suspect]
     Dosage: Unknown/D
     Route: 048
     Dates: start: 20120925, end: 20121002
  4. ZYLORIC [Suspect]
     Dosage: Unknown/D
     Route: 048
     Dates: start: 20121003, end: 20121016
  5. ZYLORIC [Suspect]
     Route: 048
     Dates: start: 20121023, end: 20121029
  6. AMIODARONE [Concomitant]
  7. CALCIMAGON [Concomitant]
  8. ELTROXIN [Concomitant]
  9. ESOMEP [Concomitant]
  10. NOVALGIN [Concomitant]
     Dates: start: 20121023
  11. TORASEM [Concomitant]
  12. ONDANSETRON [Concomitant]
     Dates: start: 20121029, end: 20121031
  13. HEPARIN FRESENIUS [Concomitant]
     Dates: start: 20120920

REACTIONS (3)
  - Rash maculo-papular [Recovering/Resolving]
  - Pruritus [Recovered/Resolved]
  - Skin exfoliation [Recovering/Resolving]
